FAERS Safety Report 12293498 (Version 1)
Quarter: 2016Q2

REPORT INFORMATION
  Report Type: Spontaneous
  Country: US (occurrence: US)
  Receive Date: 20160421
  Receipt Date: 20160421
  Transmission Date: 20160815
  Serious: No
  Sender: FDA-Public Use
  Company Number: US-AMGEN-USASP2016049853

PATIENT
  Age: 51 Year
  Sex: Female

DRUGS (1)
  1. ENBREL [Suspect]
     Active Substance: ETANERCEPT
     Indication: RHEUMATOID ARTHRITIS
     Dosage: 50 MG, UNK
     Route: 065
     Dates: start: 2015

REACTIONS (9)
  - Musculoskeletal disorder [Unknown]
  - Aphonia [Unknown]
  - Influenza [Unknown]
  - Bursitis [Unknown]
  - Malaise [Unknown]
  - Activities of daily living impaired [Unknown]
  - Bunion operation [Unknown]
  - Localised infection [Unknown]
  - Swelling [Recovering/Resolving]

NARRATIVE: CASE EVENT DATE: 2015
